FAERS Safety Report 13763320 (Version 2)
Quarter: 2018Q2

REPORT INFORMATION
  Report Type: Spontaneous
  Country: BR (occurrence: BR)
  Receive Date: 20170718
  Receipt Date: 20180622
  Transmission Date: 20180711
  Serious: Yes (Other)
  Sender: FDA-Public Use
  Company Number: BR-AMGEN-BRASP2017107859

PATIENT
  Age: 72 Year
  Sex: Female

DRUGS (1)
  1. ENBREL [Suspect]
     Active Substance: ETANERCEPT
     Indication: PRODUCT USED FOR UNKNOWN INDICATION
     Dosage: UNK
     Route: 065
     Dates: start: 2011

REACTIONS (7)
  - Spinal fracture [Unknown]
  - Swelling [Unknown]
  - Arthralgia [Not Recovered/Not Resolved]
  - Osteoporosis [Unknown]
  - Feeling abnormal [Unknown]
  - Posture abnormal [Unknown]
  - Fall [Unknown]

NARRATIVE: CASE EVENT DATE: 2017
